FAERS Safety Report 8052911-6 (Version None)
Quarter: 2012Q1

REPORT INFORMATION
  Report Type: 
  Country: None (occurrence: None)
  Receive Date: 20120117
  Receipt Date: 20120117
  Transmission Date: 20120608
  Serious: Yes (Hospitalization)
  Sender: FDA-Public Use
  Company Number: None

PATIENT
  Sex: Female
  Weight: 44 kg

DRUGS (6)
  1. CYCLOPHOSPHAMIDE [Suspect]
     Dosage: 1073 MG
  2. DOXORUBICIN HCL [Suspect]
     Dosage: 56 MG
  3. PREDNISONE [Suspect]
     Dosage: 900 MG
  4. VINCRISTINE SULFATE [Suspect]
     Dosage: 2.4 MG
  5. RITUXIMAB (MOAB C2B8 ANTI CD20, CHIMERIC) [Suspect]
     Dosage: 536 MG
  6. ETOPOSIDE [Suspect]
     Dosage: 288 MG

REACTIONS (9)
  - THROMBOCYTOPENIA [None]
  - DEHYDRATION [None]
  - PYREXIA [None]
  - STREPTOCOCCUS TEST POSITIVE [None]
  - BRONCHOPNEUMONIA [None]
  - ASTHENIA [None]
  - NEUTROPENIA [None]
  - MUCOSAL INFLAMMATION [None]
  - WHITE BLOOD CELL COUNT DECREASED [None]
